FAERS Safety Report 10516017 (Version 1)
Quarter: 2014Q3

REPORT INFORMATION
  Report Type: Spontaneous
  Country: US (occurrence: None)
  Receive Date: 20140926
  Receipt Date: 20140926
  Transmission Date: 20150326
  Serious: No
  Sender: FDA-Public Use
  Company Number: 1000069486

PATIENT
  Age: 89 Year
  Sex: Female

DRUGS (5)
  1. MILK OF MAGNESIA [Suspect]
     Active Substance: MAGNESIUM HYDROXIDE
     Indication: CONSTIPATION
     Dates: end: 20140718
  2. MAGNESIUM (MAGNESIUM) [Concomitant]
     Active Substance: MAGNESIUM
  3. BLOOD PRESSURE PILL NOS (BLOOD PRESSURE PILL NOS) (BLOOD PRESSURE PILL NOS) [Concomitant]
  4. LINZESS [Suspect]
     Active Substance: LINACLOTIDE
     Indication: IRRITABLE BOWEL SYNDROME
     Route: 048
     Dates: start: 20140729
  5. LINZESS [Suspect]
     Active Substance: LINACLOTIDE
     Indication: CONSTIPATION
     Route: 048
     Dates: start: 20140729

REACTIONS (1)
  - Diarrhoea [None]

NARRATIVE: CASE EVENT DATE: 20140730
